FAERS Safety Report 6115909-0 (Version None)
Quarter: 2009Q1

REPORT INFORMATION
  Report Type: 
  Country: None (occurrence: None)
  Receive Date: 20090311
  Receipt Date: 20090303
  Transmission Date: 20090719
  Serious: Yes (Hospitalization, Disabling)
  Sender: FDA-Public Use
  Company Number: 207937

PATIENT
  Age: 45 Year
  Sex: Female

DRUGS (6)
  1. PACLITAXEL [Suspect]
     Indication: BREAST CANCER
     Dosage: 6 COURSES OF STANDARD DOSE
     Dates: end: 20051201
  2. DOXORUBICIN HCL [Suspect]
     Indication: BREAST CANCER
     Dates: end: 20051201
  3. LETROZOLE [Suspect]
     Indication: BREAST CANCER
     Dosage: 2.5 MG
     Dates: start: 20060101
  4. TRASTUZUMAB [Suspect]
     Indication: BREAST CANCER
     Dosage: 4 MG/KG : 6 MG/KG (EVERY 3 WEEKS)
     Dates: start: 20060101, end: 20060401
  5. TRASTUZUMAB [Suspect]
     Indication: BREAST CANCER
     Dosage: 4 MG/KG : 6 MG/KG (EVERY 3 WEEKS)
     Dates: start: 20060101, end: 20060401
  6. THERAPEUTIC RADIOPHARMACEUTICALS [Concomitant]

REACTIONS (4)
  - CARDIAC FAILURE [None]
  - CARDIOTOXICITY [None]
  - INTRACARDIAC THROMBUS [None]
  - SINUS TACHYCARDIA [None]
